FAERS Safety Report 6423303-8 (Version None)
Quarter: 2009Q4

REPORT INFORMATION
  Report Type: 
  Country: None (occurrence: None)
  Receive Date: 20091022
  Receipt Date: 20090724
  Transmission Date: 20100525
  Serious: Yes (Other)
  Sender: FDA-Public Use
  Company Number: 2009RR-25826

PATIENT
  Age: 53 Year
  Sex: Female

DRUGS (1)
  1. TOPIRAMATE [Suspect]
     Dosage: 50 MG, BID, ORAL
     Route: 048

REACTIONS (1)
  - ANGLE CLOSURE GLAUCOMA [None]
